FAERS Safety Report 8643959 (Version 2)
Quarter: 2014Q1

REPORT INFORMATION
  Report Type: Spontaneous
  Country: US (occurrence: None)
  Receive Date: 20120323
  Receipt Date: 20130305
  Transmission Date: 20141002
  Serious: Yes (Disabling, Other)
  Sender: FDA-Public Use
  Company Number: 163-21880-11101221

PATIENT
  Age: 87 Year
  Sex: Female
  Weight: 70.76 kg

DRUGS (3)
  1. REVLIMID [Suspect]
     Indication: MYELODYSPLASTIC SYNDROME
     Dosage: 10 MG, 1 IN 1 D, PO
     Route: 048
     Dates: start: 20110820, end: 20110915
  2. ALDACTAZIDE (ALDACTAZIDE A) (TABLETS) [Concomitant]
  3. FLUOXETINE (FLUOXETINE HYDROCHLORIDE) (CAPSULES) [Concomitant]

REACTIONS (2)
  - Platelet count decreased [None]
  - White blood cell count decreased [None]
